FAERS Safety Report 6681561-9 (Version None)
Quarter: 2010Q2

REPORT INFORMATION
  Report Type: 
  Country: None (occurrence: None)
  Receive Date: 20100414
  Receipt Date: 20100408
  Transmission Date: 20101027
  Serious: Yes (Other)
  Sender: FDA-Public Use
  Company Number: PHHY2010BR22119

PATIENT
  Sex: Male

DRUGS (1)
  1. EXELON [Suspect]
     Dosage: 18 MG/10 CM2
     Route: 062

REACTIONS (3)
  - ABASIA [None]
  - MALAISE [None]
  - SPEECH DISORDER [None]
